FAERS Safety Report 7400568-7 (Version None)
Quarter: 2011Q2

REPORT INFORMATION
  Report Type: 
  Country: None (occurrence: None)
  Receive Date: 20110407
  Receipt Date: 20110329
  Transmission Date: 20111010
  Serious: Yes (Other)
  Sender: FDA-Public Use
  Company Number: US-ASTRAZENECA-2010SE28670

PATIENT
  Sex: Female

DRUGS (6)
  1. LOVAZA [Concomitant]
     Dosage: EVERY MORNING
  2. NEXIUM [Suspect]
     Dosage: EVERY MORNING
     Route: 048
  3. PRILOSEC [Suspect]
     Route: 048
  4. SYNTHROID [Concomitant]
  5. LOVAZA [Concomitant]
  6. CHLORDIAZEPOXIDE [Concomitant]

REACTIONS (14)
  - HEPATIC NEOPLASM MALIGNANT [None]
  - ASCITES [None]
  - HYPERTENSION [None]
  - HAEMORRHOIDS [None]
  - HEPATIC NEOPLASM [None]
  - MALAISE [None]
  - NAUSEA [None]
  - THYROID DISORDER [None]
  - PAIN [None]
  - COLON CANCER [None]
  - ANGIOMYOLIPOMA [None]
  - DRUG INEFFECTIVE [None]
  - ANXIETY [None]
  - PERICARDITIS [None]
